FAERS Safety Report 13545148 (Version 1)
Quarter: 2017Q2

REPORT INFORMATION
  Report Type: Spontaneous
  Country: DE (occurrence: DE)
  Receive Date: 20170515
  Receipt Date: 20170515
  Transmission Date: 20170830
  Serious: Yes (Death, Congenital Anomaly)
  Sender: FDA-Public Use
  Company Number: DE-ASTRAZENECA-2017SE51124

PATIENT
  Age: 1 Day
  Sex: Male
  Weight: 2.7 kg

DRUGS (3)
  1. FOLIC ACID. [Concomitant]
     Active Substance: FOLIC ACID
     Indication: PROPHYLAXIS OF NEURAL TUBE DEFECT
     Route: 064
  2. L-THYROXIN [Concomitant]
     Active Substance: LEVOTHYROXINE SODIUM
     Indication: HYPOTHYROIDISM
     Route: 064
     Dates: start: 20160328, end: 20161124
  3. QUETIAPINE. [Suspect]
     Active Substance: QUETIAPINE
     Indication: DEPRESSION
     Route: 064
     Dates: start: 20160328, end: 20161124

REACTIONS (5)
  - Congenital tricuspid valve incompetence [Not Recovered/Not Resolved]
  - Ventricular tachyarrhythmia [Not Recovered/Not Resolved]
  - Congestive cardiomyopathy [Fatal]
  - Congenital mitral valve incompetence [Not Recovered/Not Resolved]
  - Supraventricular tachycardia [Not Recovered/Not Resolved]

NARRATIVE: CASE EVENT DATE: 20161124
